FAERS Safety Report 10027966 (Version 3)
Quarter: 2014Q2

REPORT INFORMATION
  Report Type: Spontaneous
  Country: JP (occurrence: JP)
  Receive Date: 20140321
  Receipt Date: 20140612
  Transmission Date: 20141212
  Serious: Yes (Hospitalization)
  Sender: FDA-Public Use
  Company Number: JP-BAXTER-2014BAX014699

PATIENT
  Age: 38 Year
  Sex: Female

DRUGS (8)
  1. IFOSFAMIDE FOR INJECTION [Suspect]
     Indication: SARCOMA UTERUS
     Route: 041
     Dates: start: 20140310
  2. IFOSFAMIDE FOR INJECTION [Suspect]
     Route: 041
     Dates: start: 20140312
  3. UROMITEXAN [Suspect]
     Indication: PROPHYLAXIS
     Route: 041
     Dates: start: 20140310
  4. UROMITEXAN [Suspect]
     Route: 041
     Dates: start: 20140312
  5. EMEND [Concomitant]
     Indication: PROPHYLAXIS OF NAUSEA AND VOMITING
     Route: 048
     Dates: start: 20140310, end: 20140310
  6. EMEND [Concomitant]
     Route: 048
     Dates: start: 20140311, end: 20140312
  7. ALOXI [Concomitant]
     Indication: PROPHYLAXIS OF NAUSEA AND VOMITING
     Route: 041
     Dates: start: 20140310, end: 20140310
  8. DEXART [Concomitant]
     Indication: PROPHYLAXIS OF NAUSEA AND VOMITING
     Route: 041
     Dates: start: 20140310, end: 20140312

REACTIONS (2)
  - Encephalopathy [Recovered/Resolved]
  - Oedema peripheral [Recovered/Resolved]
